FAERS Safety Report 8535578-X (Version None)
Quarter: 2012Q2

REPORT INFORMATION
  Report Type: 
  Country: None (occurrence: None)
  Receive Date: 20120412
  Receipt Date: 20100203
  Transmission Date: 20120825
  Serious: Yes (Other)
  Sender: FDA-Public Use
  Company Number: PHHY2010US06430

PATIENT
  Age: 65 Year
  Sex: Female

DRUGS (16)
  1. SEROQUEL [Concomitant]
  2. CLOZARIL [Suspect]
     Dosage: SEE IMAGE
     Dates: start: 20100106
  3. CLOZARIL [Suspect]
     Dosage: SEE IMAGE
     Dates: start: 20091117
  4. CLOZARIL [Suspect]
     Dosage: SEE IMAGE
     Dates: start: 20100109
  5. CLOZARIL [Suspect]
     Dosage: SEE IMAGE
     Dates: start: 20100202
  6. CLOZARIL [Suspect]
     Dosage: SEE IMAGE
     Dates: start: 20100111
  7. CLOZARIL [Suspect]
     Dosage: SEE IMAGE
     Dates: start: 20100128
  8. CLOZARIL [Suspect]
     Dosage: SEE IMAGE
     Dates: start: 20091124
  9. CLOZARIL [Suspect]
     Dosage: SEE IMAGE
     Dates: start: 20091201
  10. CLOZARIL [Suspect]
     Dosage: SEE IMAGE
     Dates: start: 20091222
  11. CLOZARIL [Suspect]
     Dosage: SEE IMAGE
     Dates: start: 20091229
  12. CLOZARIL [Suspect]
     Dosage: SEE IMAGE
     Dates: start: 20100113
  13. CLOZARIL [Suspect]
     Dosage: SEE IMAGE
     Dates: start: 20091208
  14. CLOZARIL [Suspect]
     Dosage: SEE IMAGE
     Dates: start: 20100120
  15. CLOZARIL [Suspect]
     Dosage: SEE IMAGE
     Dates: start: 20100125
  16. RISPERDAL [Concomitant]

REACTIONS (4)
  - WHITE BLOOD CELL COUNT INCREASED [None]
  - HEART RATE INCREASED [None]
  - NEUTROPHIL COUNT INCREASED [None]
  - NAIL INFECTION [None]
